FAERS Safety Report 5932001-6 (Version None)
Quarter: 2008Q4

REPORT INFORMATION
  Report Type: 
  Country: None (occurrence: None)
  Receive Date: 20081027
  Receipt Date: 20081024
  Transmission Date: 20090506
  Serious: Yes (Hospitalization)
  Sender: FDA-Public Use
  Company Number: US-B.I. PHARMACEUTICALS,INC./RIDGEFIELD-2008-BP-13679BP

PATIENT
  Sex: Male

DRUGS (17)
  1. SPIRIVA [Suspect]
     Indication: CHRONIC OBSTRUCTIVE PULMONARY DISEASE
     Dosage: 18MCG
     Route: 055
     Dates: start: 20080101
  2. ADVAIR DISKUS 100/50 [Concomitant]
     Indication: CHRONIC OBSTRUCTIVE PULMONARY DISEASE
  3. ALBUTEROL [Concomitant]
     Indication: CHRONIC OBSTRUCTIVE PULMONARY DISEASE
  4. CARDURA [Concomitant]
     Indication: ATRIAL FIBRILLATION
  5. ENABLEX [Concomitant]
     Indication: PROSTATE CANCER
     Dates: start: 20040101
  6. IRON [Concomitant]
     Indication: PROSTATE CANCER
     Dates: start: 20040101
  7. NIACIN [Concomitant]
     Indication: BLOOD CHOLESTEROL
  8. PAXIL [Concomitant]
     Indication: ANTIDEPRESSANT THERAPY
  9. PLAVIX [Concomitant]
     Indication: CARDIAC DISORDER
  10. PRILOSEC [Concomitant]
     Indication: GASTROOESOPHAGEAL REFLUX DISEASE
  11. TOPROL-XL [Concomitant]
     Indication: CARDIAC DISORDER
  12. ZOCOR [Concomitant]
     Indication: BLOOD CHOLESTEROL
  13. BURST OF PREDNISONE [Concomitant]
     Indication: CHRONIC OBSTRUCTIVE PULMONARY DISEASE
  14. NITROSPAN [Concomitant]
  15. OXYGEN [Concomitant]
  16. COLACE [Concomitant]
  17. ASPIRIN [Concomitant]

REACTIONS (4)
  - ABDOMINAL PAIN UPPER [None]
  - DEHYDRATION [None]
  - DYSPNOEA [None]
  - MALNUTRITION [None]
